FAERS Safety Report 9435420 (Version 1)
Quarter: 2013Q3

REPORT INFORMATION
  Report Type: Spontaneous
  Country: GB (occurrence: GB)
  Receive Date: 20130801
  Receipt Date: 20130801
  Transmission Date: 20140515
  Serious: Yes (Other)
  Sender: FDA-Public Use
  Company Number: GB-GLAXOSMITHKLINE-B0911041A

PATIENT
  Age: 24 Year
  Sex: Male
  Weight: 76.2 kg

DRUGS (3)
  1. LAMICTAL [Suspect]
     Indication: CONVULSION
     Dosage: 150MG PER DAY
     Route: 048
  2. OXYBUTYNIN HYDROCHLORIDE [Concomitant]
  3. DILTIAZEM HYDROCHLORIDE [Concomitant]

REACTIONS (4)
  - Lethargy [Recovered/Resolved]
  - Depressed mood [Recovered/Resolved]
  - Product substitution issue [Unknown]
  - Reaction to drug excipients [Unknown]
